FAERS Safety Report 16014006 (Version 10)
Quarter: 2019Q3

REPORT INFORMATION
  Report Type: Report from Study
  Country: US (occurrence: US)
  Receive Date: 20190227
  Receipt Date: 20190820
  Transmission Date: 20191004
  Serious: Yes (Hospitalization, Other)
  Sender: FDA-Public Use
  Company Number: US-GILEAD-2019-0393779

PATIENT
  Age: 37 Year
  Sex: Female

DRUGS (7)
  1. AMBRISENTAN [Suspect]
     Active Substance: AMBRISENTAN
     Dosage: 10 MG, QD
     Route: 065
     Dates: start: 20151128
  2. PHENERGAN [Suspect]
     Active Substance: PROMETHAZINE HYDROCHLORIDE
     Indication: PRODUCT USED FOR UNKNOWN INDICATION
     Dosage: UNK
     Route: 065
  3. FLOLAN [Suspect]
     Active Substance: EPOPROSTENOL SODIUM
     Dosage: 66 NKM
     Route: 042
  4. FLOLAN [Suspect]
     Active Substance: EPOPROSTENOL SODIUM
     Indication: PULMONARY HYPERTENSION
     Dosage: 52 NKM
     Route: 042
  5. SILDENAFIL. [Suspect]
     Active Substance: SILDENAFIL
     Indication: PULMONARY ARTERIAL HYPERTENSION
     Dosage: UNK
     Route: 065
     Dates: start: 20151127
  6. AMBRISENTAN [Suspect]
     Active Substance: AMBRISENTAN
     Indication: PULMONARY ARTERIAL HYPERTENSION
     Dosage: 5 MG, QD
     Route: 065
     Dates: start: 20151127, end: 20151127
  7. EPOPROSTENOL SODIUM. [Suspect]
     Active Substance: EPOPROSTENOL SODIUM
     Indication: PULMONARY HYPERTENSION
     Route: 065

REACTIONS (13)
  - Abdominal distension [Not Recovered/Not Resolved]
  - Abdominal distension [Not Recovered/Not Resolved]
  - Pain [Unknown]
  - Contusion [Unknown]
  - Fluid retention [Not Recovered/Not Resolved]
  - Ventricular enlargement [Not Recovered/Not Resolved]
  - Right ventricular failure [Unknown]
  - Dyspnoea [Not Recovered/Not Resolved]
  - Withdrawal syndrome [Recovering/Resolving]
  - Abdominal pain [Unknown]
  - Dizziness [Recovering/Resolving]
  - Gastrointestinal disorder [Unknown]
  - Cold sweat [Recovering/Resolving]

NARRATIVE: CASE EVENT DATE: 20190226
